FAERS Safety Report 5926391-8 (Version None)
Quarter: 2008Q4

REPORT INFORMATION
  Report Type: 
  Country: None (occurrence: None)
  Receive Date: 20081022
  Receipt Date: 20081016
  Transmission Date: 20090506
  Serious: Yes (Hospitalization)
  Sender: FDA-Public Use
  Company Number: GB-TEVA-167358ISR

PATIENT
  Sex: Female
  Weight: 55 kg

DRUGS (10)
  1. FOLINIC ACID [Suspect]
     Indication: COLORECTAL CANCER METASTATIC
     Route: 041
     Dates: start: 20070702
  2. SU 011248 (SUNITINIB MALEATE) [Suspect]
     Indication: COLORECTAL CANCER METASTATIC
     Route: 048
     Dates: start: 20070702
  3. SU 011248 (SUNITINIB MALEATE) [Suspect]
     Route: 048
     Dates: start: 20080114, end: 20070123
  4. IRINOTECAN HCL [Suspect]
     Indication: COLORECTAL CANCER METASTATIC
     Route: 041
     Dates: start: 20070702
  5. FLUOROURACIL [Suspect]
     Indication: COLORECTAL CANCER METASTATIC
     Route: 040
     Dates: start: 20070702
  6. FLUOROURACIL [Suspect]
     Route: 041
     Dates: start: 20070702
  7. ONDANSETRON [Concomitant]
     Route: 048
     Dates: start: 20080114, end: 20080117
  8. METOCLOPRAMIDE [Concomitant]
     Route: 048
     Dates: start: 20080115, end: 20080117
  9. METOCLOPRAMIDE [Concomitant]
     Route: 042
     Dates: start: 20080114, end: 20080114
  10. ATROPINE [Concomitant]
     Route: 058
     Dates: start: 20080114, end: 20080114

REACTIONS (1)
  - SMALL INTESTINAL OBSTRUCTION [None]
